FAERS Safety Report 6138463-6 (Version None)
Quarter: 2009Q1

REPORT INFORMATION
  Report Type: 
  Country: None (occurrence: None)
  Receive Date: 20090331
  Receipt Date: 20090323
  Transmission Date: 20090719
  Serious: Yes (Other)
  Sender: FDA-Public Use
  Company Number: NO-BRISTOL-MYERS SQUIBB COMPANY-14566459

PATIENT
  Age: 45 Year
  Sex: Male

DRUGS (1)
  1. GLUCOPHAGE [Suspect]
     Route: 048
     Dates: start: 20081014, end: 20090301

REACTIONS (1)
  - POLYNEUROPATHY [None]
